FAERS Safety Report 9233731 (Version 1)
Quarter: 2013Q2

REPORT INFORMATION
  Report Type: Spontaneous
  Country: US (occurrence: US)
  Receive Date: 20130416
  Receipt Date: 20130416
  Transmission Date: 20140414
  Serious: No
  Sender: FDA-Public Use
  Company Number: US-BANPHARM-20130993

PATIENT
  Age: 14 Month
  Sex: Female
  Weight: 10.43 kg

DRUGS (1)
  1. ALEVE LIQUID GELS 220MG [Suspect]
     Dosage: 1-2 DF,
     Route: 048
     Dates: start: 20120516, end: 20120516

REACTIONS (2)
  - Retching [Unknown]
  - Accidental exposure to product by child [Unknown]
